FAERS Safety Report 24686282 (Version 1)
Quarter: 2024Q4

REPORT INFORMATION
  Report Type: Spontaneous
  Country: US (occurrence: None)
  Receive Date: 20241202
  Receipt Date: 20241202
  Transmission Date: 20250115
  Serious: No
  Sender: USAntibiotics
  Company Number: US-USAntibiotics-000366

PATIENT
  Sex: Male
  Weight: 75.11 kg

DRUGS (3)
  1. AUGMENTIN [Suspect]
     Active Substance: AMOXICILLIN\CLAVULANATE POTASSIUM
     Indication: Product used for unknown indication
  2. VYNDAMAX [Suspect]
     Active Substance: TAFAMIDIS
     Indication: Acquired ATTR amyloidosis
     Dosage: TAKE ONE CAPSULE EVERY DAY
     Route: 048
     Dates: start: 20230130
  3. ROSUVASTATIN [Concomitant]
     Active Substance: ROSUVASTATIN
     Indication: Product used for unknown indication
     Dosage: TAKE ONE TABLET DAILY
     Route: 048
     Dates: start: 20240606

REACTIONS (1)
  - Drug hypersensitivity [Unknown]
